FAERS Safety Report 7912113-8 (Version None)
Quarter: 2011Q4

REPORT INFORMATION
  Report Type: 
  Country: None (occurrence: None)
  Receive Date: 20111114
  Receipt Date: 20111103
  Transmission Date: 20120403
  Serious: Yes (Other)
  Sender: FDA-Public Use
  Company Number: US-SANOFI-AVENTIS-2011SA072413

PATIENT
  Age: 14 Year
  Sex: Male

DRUGS (1)
  1. LOVENOX [Suspect]
     Indication: THROMBOSIS PROPHYLAXIS
     Route: 058
     Dates: start: 20091002, end: 20091015

REACTIONS (2)
  - THROMBOSIS [None]
  - VENOUS INSUFFICIENCY [None]
